FAERS Safety Report 9488675 (Version 5)
Quarter: 2014Q1

REPORT INFORMATION
  Report Type: Spontaneous
  Country: FI (occurrence: FI)
  Receive Date: 20130829
  Receipt Date: 20140123
  Transmission Date: 20141002
  Serious: Yes (Hospitalization, Other)
  Sender: FDA-Public Use
  Company Number: FI-ROCHE-1267580

PATIENT
  Age: 66 Year
  Sex: Female
  Weight: 60 kg

DRUGS (19)
  1. ROACTEMRA [Suspect]
     Indication: RHEUMATOID ARTHRITIS
     Route: 065
     Dates: start: 201111
  2. ROACTEMRA [Suspect]
     Indication: AMYLOIDOSIS
     Route: 065
     Dates: start: 2013, end: 2013
  3. ROACTEMRA [Suspect]
     Route: 065
     Dates: start: 20130801
  4. ROACTEMRA [Suspect]
     Dosage: DOSE REDUCED
     Route: 065
  5. ROACTEMRA [Suspect]
     Route: 065
     Dates: start: 20130801
  6. ROACTEMRA [Suspect]
     Route: 065
     Dates: start: 20110712
  7. ROACTEMRA [Suspect]
     Route: 042
     Dates: start: 20111207
  8. ROACTEMRA [Suspect]
     Route: 042
     Dates: start: 20120107
  9. CRESTOR [Suspect]
     Indication: RHEUMATOID ARTHRITIS
     Route: 065
  10. EZETROL [Suspect]
     Indication: RHEUMATOID ARTHRITIS
     Route: 065
  11. METFOREM [Suspect]
     Indication: RHEUMATOID ARTHRITIS
     Route: 065
  12. PANADOL [Suspect]
     Indication: RHEUMATOID ARTHRITIS
     Route: 065
  13. PREDNISOLON [Concomitant]
     Indication: RHEUMATOID ARTHRITIS
     Route: 065
  14. PREDNISOLON [Concomitant]
     Route: 065
  15. TRIOBE [Concomitant]
     Route: 065
  16. LINATIL [Concomitant]
     Route: 065
  17. MAREVAN [Concomitant]
     Route: 065
  18. METHOTREXATE [Concomitant]
  19. ARAVA [Concomitant]
     Indication: RHEUMATOID ARTHRITIS
     Route: 048

REACTIONS (6)
  - Peripheral ischaemia [Unknown]
  - Alanine aminotransferase increased [Recovered/Resolved]
  - Toe amputation [Unknown]
  - Embolism arterial [Recovered/Resolved with Sequelae]
  - Peripheral ischaemia [Recovered/Resolved with Sequelae]
  - Extremity necrosis [Recovered/Resolved with Sequelae]
